FAERS Safety Report 4562986-4 (Version None)
Quarter: 2005Q1

REPORT INFORMATION
  Report Type: 
  Country: None (occurrence: None)
  Receive Date: 20050121
  Receipt Date: 20050113
  Transmission Date: 20050727
  Serious: Yes (Hospitalization)
  Sender: FDA-Public Use
  Company Number: 2005013632

PATIENT
  Age: 65 Year
  Sex: Male

DRUGS (3)
  1. LIPITOR [Suspect]
     Indication: ILL-DEFINED DISORDER
     Dosage: 10 MG (10 MG, 1 IN 1 D), ORAL
     Route: 048
     Dates: start: 20041201, end: 20050101
  2. LOSARTAN POTASSIUM [Concomitant]
  3. SENNA LEAF                (SENNA LEAF) [Concomitant]

REACTIONS (2)
  - HYPERPYREXIA [None]
  - LIVER DISORDER [None]
